FAERS Safety Report 19150861 (Version 3)
Quarter: 2021Q2

REPORT INFORMATION
  Report Type: Spontaneous
  Country: PY (occurrence: PY)
  Receive Date: 20210419
  Receipt Date: 20210601
  Transmission Date: 20210717
  Serious: Yes (Death, Other)
  Sender: FDA-Public Use
  Company Number: PY-ROCHE-2813511

PATIENT
  Age: 71 Year
  Sex: Female
  Weight: 58 kg

DRUGS (2)
  1. AVASTIN [Suspect]
     Active Substance: BEVACIZUMAB
     Indication: HEPATOCELLULAR CARCINOMA
     Dosage: FREQUENCY WERE NOT REPORTED
     Route: 065
     Dates: start: 20210311
  2. TECENTRIQ [Suspect]
     Active Substance: ATEZOLIZUMAB
     Indication: HEPATOCELLULAR CARCINOMA
     Dosage: FREQUENCY WERE NOT REPORTED
     Route: 041
     Dates: start: 20210311

REACTIONS (6)
  - Death [Fatal]
  - Ascites [Unknown]
  - Peritonitis [Unknown]
  - Pneumonia [Unknown]
  - Urinary tract infection [Unknown]
  - Sepsis [Unknown]

NARRATIVE: CASE EVENT DATE: 20210413
